FAERS Safety Report 10517520 (Version 1)
Quarter: 2014Q4

REPORT INFORMATION
  Report Type: Spontaneous
  Country: US (occurrence: None)
  Receive Date: 20141003
  Receipt Date: 20141003
  Transmission Date: 20150528
  Serious: Yes (Other)
  Sender: FDA-Public Use
  Company Number: 1281086

PATIENT
  Sex: Female

DRUGS (6)
  1. COPEGUS [Suspect]
     Active Substance: RIBAVIRIN
     Indication: CHRONIC HEPATITIS C
     Dates: start: 20130809
  2. LAMICTAL [Concomitant]
     Active Substance: LAMOTRIGINE
  3. PEGASYS [Suspect]
     Active Substance: PEGINTERFERON ALFA-2A
     Indication: CHRONIC HEPATITIS C
     Dosage: PROCLICK INJECTOR
     Dates: start: 20130809
  4. KLONOPIN [Concomitant]
     Active Substance: CLONAZEPAM
  5. EFFEXOR (VENLAFAXINE HYDROCHLORIDE) [Concomitant]
  6. INVEGA [Concomitant]
     Active Substance: PALIPERIDONE

REACTIONS (6)
  - Suicidal ideation [None]
  - Pain [None]
  - Depression [None]
  - Contusion [None]
  - Asthenia [None]
  - Anger [None]
